FAERS Safety Report 18576220 (Version 1)
Quarter: 2020Q4

REPORT INFORMATION
  Report Type: Spontaneous
  Country: JP (occurrence: JP)
  Receive Date: 20201203
  Receipt Date: 20201203
  Transmission Date: 20210114
  Serious: Yes (Hospitalization, Other)
  Sender: FDA-Public Use
  Company Number: JP-ASTRAZENECA-2020SF58800

PATIENT
  Sex: Female
  Weight: 40.4 kg

DRUGS (3)
  1. LANSOPRAZOLE. [Suspect]
     Active Substance: LANSOPRAZOLE
     Indication: PEPTIC ULCER
     Route: 065
  2. ESOMEPRAZOLE. [Suspect]
     Active Substance: ESOMEPRAZOLE MAGNESIUM
     Indication: PEPTIC ULCER
     Route: 048
  3. VONOPRAZAN FUMARATE [Suspect]
     Active Substance: VONOPRAZAN FUMARATE
     Indication: PEPTIC ULCER
     Route: 065

REACTIONS (7)
  - Dyspepsia [Recovered/Resolved]
  - Vomiting [Recovering/Resolving]
  - Drug ineffective [Recovered/Resolved]
  - Hypergastrinaemia [Recovering/Resolving]
  - Vitamin B1 deficiency [Unknown]
  - Product use issue [Recovered/Resolved]
  - Wernicke-Korsakoff syndrome [Recovering/Resolving]
